FAERS Safety Report 10524033 (Version 2)
Quarter: 2014Q4

REPORT INFORMATION
  Report Type: Spontaneous
  Country: US (occurrence: US)
  Receive Date: 20141017
  Receipt Date: 20141114
  Transmission Date: 20150528
  Serious: Yes (Other)
  Sender: FDA-Public Use
  Company Number: US-AMGEN INC.-USASP2014079599

PATIENT
  Age: 57 Year
  Sex: Female
  Weight: 85.71 kg

DRUGS (1)
  1. ENBREL [Suspect]
     Active Substance: ETANERCEPT
     Indication: PSORIASIS
     Dosage: 50 MG, 2 TIMES/WK
     Route: 058
     Dates: start: 20140129, end: 20141021

REACTIONS (8)
  - Actinomycotic skin infection [Unknown]
  - Excessive granulation tissue [Unknown]
  - Osteomyelitis acute [Unknown]
  - Osteomyelitis chronic [Unknown]
  - Cemento osseous dysplasia [Unknown]
  - Abscess [Unknown]
  - Hyperplasia [Unknown]
  - Actinomycosis [Not Recovered/Not Resolved]

NARRATIVE: CASE EVENT DATE: 2014
